FAERS Safety Report 9422313 (Version 3)
Quarter: 2013Q4

REPORT INFORMATION
  Report Type: Spontaneous
  Country: PL (occurrence: PL)
  Receive Date: 20130726
  Receipt Date: 20131008
  Transmission Date: 20140711
  Serious: Yes (Other)
  Sender: FDA-Public Use
  Company Number: PL-ROCHE-1253663

PATIENT
  Age: 45 Year
  Sex: Male
  Weight: 100 kg

DRUGS (8)
  1. MABTHERA [Suspect]
     Indication: RHEUMATOID ARTHRITIS
     Dosage: 2X1000 MG / 2 WEEKS
     Route: 042
     Dates: start: 20100611, end: 20120809
  2. LEFLUNOMIDE [Suspect]
     Indication: RHEUMATOID ARTHRITIS
     Route: 048
     Dates: start: 200911, end: 200912
  3. REMICADE [Suspect]
     Indication: RHEUMATOID ARTHRITIS
     Route: 042
     Dates: start: 201001, end: 201004
  4. METHOTREXATE [Concomitant]
     Indication: RHEUMATOID ARTHRITIS
     Route: 048
     Dates: start: 200907
  5. OLFEN [Concomitant]
     Route: 048
  6. METYPRED (POLAND) [Concomitant]
     Indication: RHEUMATOID ARTHRITIS
     Route: 048
  7. POLPRAZOL [Concomitant]
     Route: 048
  8. FOLIC ACID [Concomitant]
     Route: 048
     Dates: start: 200907

REACTIONS (1)
  - Papillary thyroid cancer [Unknown]
